FAERS Safety Report 8512437-X (Version None)
Quarter: 2012Q3

REPORT INFORMATION
  Report Type: 
  Country: None (occurrence: None)
  Receive Date: 20120716
  Receipt Date: 20120712
  Transmission Date: 20120928
  Serious: Yes (Hospitalization)
  Sender: FDA-Public Use
  Company Number: AU-AMGEN-AUSCT2012010167

PATIENT
  Age: 51 Year
  Sex: Female
  Weight: 67.5 kg

DRUGS (44)
  1. APREPITANT [Concomitant]
     Route: 048
     Dates: start: 20110921
  2. AMOXYCILLIN/CLAVULANIC ACID GENERIC HEALTH [Concomitant]
     Dosage: 500 MG, UNK
     Route: 048
     Dates: start: 20111110, end: 20111212
  3. CLARATYNE [Concomitant]
     Dosage: 10 MG, UNK
     Route: 048
     Dates: start: 20111110, end: 20111212
  4. VENTOLIN [Concomitant]
     Dosage: 100 MUG, UNK
     Route: 055
     Dates: start: 20111122
  5. TRAMADOL HCL [Concomitant]
     Dosage: 50 MG, UNK
     Route: 042
     Dates: start: 20111212, end: 20111212
  6. VITAMIN D [Concomitant]
     Dosage: 400 IU, UNK
     Route: 048
     Dates: start: 20110927
  7. BLINDED DENOSUMAB [Suspect]
     Indication: BREAST CANCER
     Route: 058
     Dates: start: 20110927
  8. PLACEBO [Suspect]
     Indication: BREAST CANCER
     Route: 058
     Dates: start: 20110927
  9. PHENERGAN HCL [Concomitant]
     Dosage: 10 MG, UNK
     Route: 048
     Dates: start: 20111018, end: 20120217
  10. FENTANYL [Concomitant]
     Dosage: 100 MUG, UNK
     Route: 042
     Dates: start: 20111212, end: 20111212
  11. MAXOLON [Concomitant]
     Dosage: 10 MG, UNK
     Route: 042
     Dates: start: 20111212, end: 20111212
  12. DIFFLAM [Concomitant]
     Dosage: 10 ML, UNK
     Route: 048
     Dates: start: 20120115
  13. CALCIUM [Concomitant]
     Dosage: 500 MG, UNK
     Route: 048
     Dates: start: 20110927
  14. CLONIDINE [Concomitant]
     Dosage: 150 MUG, UNK
     Route: 042
     Dates: start: 20111212, end: 20111212
  15. METARAMINOL BITARTRATE [Concomitant]
     Dosage: 15 MG, UNK
     Route: 042
     Dates: start: 20111212, end: 20111212
  16. ENDEP [Concomitant]
     Dosage: 50 MG, QD
     Route: 048
     Dates: start: 20060615
  17. DICLOFENAC [Concomitant]
     Dosage: 50 MG, UNK
     Route: 048
     Dates: start: 20111213, end: 20111221
  18. PROCHLORPERAZINE [Concomitant]
     Dosage: 12.5 MG, UNK
     Route: 030
     Dates: start: 20110920, end: 20120220
  19. DIMETAPP [Concomitant]
     Dosage: 500 MUG, UNK
     Route: 055
     Dates: start: 20111024, end: 20111212
  20. PAROXETINE HCL [Concomitant]
     Dosage: 10 MG, UNK
     Route: 048
     Dates: start: 20060615
  21. NILSTAT [Concomitant]
     Dosage: 1 ML, UNK
     Route: 048
     Dates: start: 20110927
  22. CEFAZOLIN [Concomitant]
     Dosage: 1000 MG, UNK
     Route: 042
     Dates: start: 20111212, end: 20111212
  23. PARECOXIB SODIUM [Concomitant]
     Dosage: 40 MG, UNK
     Route: 042
     Dates: start: 20111212, end: 20111212
  24. CEPHALEXIN [Concomitant]
     Dosage: 500 MG, UNK
     Route: 048
     Dates: start: 20111213, end: 20111221
  25. NAVOBAN [Concomitant]
     Dosage: 5 MG, UNK
     Route: 048
     Dates: start: 20110920
  26. APREPITANT [Concomitant]
     Dosage: 80 MG, UNK
     Route: 048
     Dates: start: 20110920
  27. TEMAZEPAM [Concomitant]
     Dosage: 10 MG, UNK
     Route: 048
     Dates: start: 20120216
  28. DEXAMETHASONE [Concomitant]
     Dosage: 3 MG, UNK
     Route: 042
     Dates: start: 20110920, end: 20111212
  29. OXYCODONE HCL [Concomitant]
     Dosage: 10 MG, UNK
     Route: 048
     Dates: start: 20111212, end: 20111214
  30. PEGFILGRASTIM [Suspect]
     Dosage: 6 MG, Q3WK
     Route: 058
     Dates: start: 20120118
  31. CODEINE PHOSPHATE [Concomitant]
     Dosage: 30 MG, UNK
     Route: 048
     Dates: start: 20110916
  32. ZYRTEC [Concomitant]
     Dosage: 10 MG, UNK
     Route: 048
     Dates: start: 20111110, end: 20111212
  33. MORPHINE [Concomitant]
     Dosage: 5 MG, UNK
     Route: 058
     Dates: start: 20111212, end: 20120220
  34. ZANTAC [Concomitant]
     Dosage: 150 MG, UNK
     Route: 048
     Dates: start: 20120115, end: 20120215
  35. DOCETAXEL [Concomitant]
     Dosage: 175 MG, Q3WK
     Route: 042
     Dates: start: 20120117
  36. COLOXYL WITH SENNA [Concomitant]
     Dosage: UNK
     Route: 048
     Dates: start: 20110926
  37. MIDAZOLAM [Concomitant]
     Dosage: 3 MG, UNK
     Route: 042
     Dates: start: 20111212, end: 20111212
  38. ACETAMINOPHEN [Concomitant]
     Dosage: 1000 MG, UNK
     Route: 048
     Dates: start: 20111212, end: 20111214
  39. PROPOFOL [Concomitant]
     Dosage: 23 MG, UNK
     Route: 042
     Dates: start: 20111212, end: 20111212
  40. KEFZOL [Concomitant]
     Dosage: 1 G, UNK
     Route: 042
     Dates: start: 20111212, end: 20111213
  41. ZOFRAN [Concomitant]
     Dosage: 8 MG, UNK
     Route: 048
     Dates: start: 20110926
  42. SODIUM BICARBONATE [Concomitant]
     Dosage: 20 ML, UNK
     Route: 048
     Dates: start: 20110927
  43. HERCEPTIN [Concomitant]
     Dosage: 375 MG, Q3WK
     Route: 042
     Dates: start: 20120117
  44. SEREPAX [Concomitant]
     Dosage: 10 MG, QD
     Route: 048
     Dates: start: 20060101

REACTIONS (1)
  - PAIN [None]
